FAERS Safety Report 13693504 (Version 1)
Quarter: 2017Q2

REPORT INFORMATION
  Report Type: Spontaneous
  Country: GB (occurrence: GB)
  Receive Date: 20170627
  Receipt Date: 20170627
  Transmission Date: 20170830
  Serious: Yes (Hospitalization)
  Sender: FDA-Public Use
  Company Number: GB-B. BRAUN MEDICAL INC.-2022529

PATIENT
  Age: 61 Year

DRUGS (1)
  1. LIDOCAINE HYDROCHLORIDE AND DEXTROSE [Suspect]
     Active Substance: DEXTROSE\LIDOCAINE HYDROCHLORIDE
     Route: 042

REACTIONS (6)
  - Agitation [Recovering/Resolving]
  - Bradyarrhythmia [Recovered/Resolved]
  - Toxicity to various agents [Recovering/Resolving]
  - Hyperkalaemia [Recovering/Resolving]
  - Generalised tonic-clonic seizure [Recovering/Resolving]
  - Metabolic acidosis [Recovering/Resolving]

NARRATIVE: CASE EVENT DATE: 20170127
